FAERS Safety Report 8820984 (Version 4)
Quarter: 2012Q4

REPORT INFORMATION
  Report Type: 
  Country: FR (occurrence: FR)
  Receive Date: 20121002
  Receipt Date: 20121221
  Transmission Date: 20130627
  Serious: Yes (Other)
  Sender: FDA-Public Use
  Company Number: FR-009507513-1209FRA007744

PATIENT
  Age: 48 None
  Sex: Male

DRUGS (2)
  1. TALOXA [Suspect]
     Indication: PRODUCT USED FOR UNKNOWN INDICATION
     Dosage: 1950 mg, qd
     Route: 048
     Dates: start: 201112
  2. TALOXA [Suspect]
     Dosage: 1350 mg, qd
     Route: 048

REACTIONS (5)
  - Balance disorder [Recovered/Resolved]
  - Asthenia [Recovered/Resolved]
  - Dysarthria [Unknown]
  - Overdose [Recovered/Resolved]
  - Incorrect dose administered [Unknown]
